FAERS Safety Report 16875469 (Version 1)
Quarter: 2019Q4

REPORT INFORMATION
  Report Type: Report from Study
  Country: JP (occurrence: JP)
  Receive Date: 20191002
  Receipt Date: 20191002
  Transmission Date: 20200122
  Serious: Yes (Other)
  Sender: FDA-Public Use
  Company Number: JP-BEH-2019102356

PATIENT
  Age: 18 Year
  Sex: Male
  Weight: 77.2 kg

DRUGS (11)
  1. IDELVION [Suspect]
     Active Substance: COAGULATION FACTOR IX RECOMBINANT HUMAN
     Indication: HAEMOSTASIS
     Dosage: 4000 IU, TOT
     Route: 042
     Dates: start: 20180822, end: 20180822
  2. IDELVION [Suspect]
     Active Substance: COAGULATION FACTOR IX RECOMBINANT HUMAN
     Indication: HAEMOSTASIS
     Dosage: 4000 IU, TOT
     Route: 042
     Dates: start: 20180822, end: 20180822
  3. TEGRETOL [Suspect]
     Active Substance: CARBAMAZEPINE
     Dosage: UNK
     Route: 048
     Dates: start: 20180620, end: 20181121
  4. IDELVION [Suspect]
     Active Substance: COAGULATION FACTOR IX RECOMBINANT HUMAN
     Dosage: 4000 IU, QW
     Route: 042
     Dates: start: 20181017, end: 20181121
  5. IDELVION [Suspect]
     Active Substance: COAGULATION FACTOR IX RECOMBINANT HUMAN
     Indication: HAEMORRHAGIC DIATHESIS
     Dosage: 4000 IU, QW
     Route: 042
     Dates: start: 20180627, end: 20180801
  6. IDELVION [Suspect]
     Active Substance: COAGULATION FACTOR IX RECOMBINANT HUMAN
     Indication: FACTOR IX DEFICIENCY
     Dosage: 4000 IU, TOT
     Route: 042
     Dates: start: 20180807, end: 20180807
  7. IDELVION [Suspect]
     Active Substance: COAGULATION FACTOR IX RECOMBINANT HUMAN
     Indication: PROPHYLAXIS
     Dosage: 4000 IU, TOT
     Route: 042
     Dates: start: 20180814, end: 20180814
  8. IDELVION [Suspect]
     Active Substance: COAGULATION FACTOR IX RECOMBINANT HUMAN
     Indication: PROPHYLAXIS
     Dosage: 4000 IU, TOT
     Route: 042
     Dates: start: 20180814, end: 20180814
  9. IDELVION [Suspect]
     Active Substance: COAGULATION FACTOR IX RECOMBINANT HUMAN
     Indication: HAEMORRHAGIC DIATHESIS
     Dosage: 4000 IU, QW
     Route: 042
     Dates: start: 20180627, end: 20180801
  10. IDELVION [Suspect]
     Active Substance: COAGULATION FACTOR IX RECOMBINANT HUMAN
     Indication: FACTOR IX DEFICIENCY
     Dosage: 4000 IU, TOT
     Route: 042
     Dates: start: 20180807, end: 20180807
  11. IDELVION [Suspect]
     Active Substance: COAGULATION FACTOR IX RECOMBINANT HUMAN
     Dosage: 4000 IU, QW
     Route: 042
     Dates: start: 20181017, end: 20181121

REACTIONS (1)
  - Epilepsy [Recovering/Resolving]

NARRATIVE: CASE EVENT DATE: 201810
